FAERS Safety Report 10077060 (Version 7)
Quarter: 2021Q3

REPORT INFORMATION
  Report Type: Spontaneous
  Country: US (occurrence: US)
  Receive Date: 20140414
  Receipt Date: 20210820
  Transmission Date: 20211014
  Serious: Yes (Death, Hospitalization, Other)
  Sender: FDA-Public Use
  Company Number: US-009507513-1404USA006950

PATIENT
  Sex: Female
  Weight: 94.79 kg

DRUGS (6)
  1. BYETTA [Suspect]
     Active Substance: EXENATIDE
     Indication: TYPE 2 DIABETES MELLITUS
     Dosage: 5 MG, UNK
     Dates: start: 20050906, end: 200812
  2. SERTRALINE HYDROCHLORIDE. [Concomitant]
     Active Substance: SERTRALINE HYDROCHLORIDE
     Indication: ANXIETY
     Dosage: UNK
     Dates: start: 20061101, end: 201104
  3. OMEPRAZOLE. [Concomitant]
     Active Substance: OMEPRAZOLE
     Indication: GASTROOESOPHAGEAL REFLUX DISEASE
     Dosage: UNK
     Dates: start: 20080301, end: 201104
  4. BYETTA [Suspect]
     Active Substance: EXENATIDE
     Dosage: 5 MG, UNK
     Dates: start: 20091208, end: 20100119
  5. JANUVIA [Suspect]
     Active Substance: SITAGLIPTIN PHOSPHATE
     Indication: TYPE 2 DIABETES MELLITUS
     Dosage: 50 MG, UNK
     Route: 048
     Dates: start: 20090330, end: 20091208
  6. SERTRALINE HYDROCHLORIDE. [Concomitant]
     Active Substance: SERTRALINE HYDROCHLORIDE
     Indication: DEPRESSION

REACTIONS (24)
  - Cholelithiasis [Unknown]
  - Spinal osteoarthritis [Unknown]
  - Gallbladder adenocarcinoma [Unknown]
  - Dyspnoea [Unknown]
  - Hypercholesterolaemia [Unknown]
  - Cholecystectomy [Unknown]
  - Infection [Unknown]
  - Cardiac disorder [Fatal]
  - Metastases to liver [Fatal]
  - Respiratory disorder [Fatal]
  - Diabetic vascular disorder [Unknown]
  - Gastrointestinal disorder [Unknown]
  - Dizziness [Unknown]
  - Altered state of consciousness [Unknown]
  - Cholecystitis [Unknown]
  - Renal atrophy [Unknown]
  - Fall [Unknown]
  - Gait disturbance [Unknown]
  - Renal cyst [Unknown]
  - Pancreatic carcinoma [Fatal]
  - Deep vein thrombosis [Unknown]
  - Urinary incontinence [Unknown]
  - Hepatic cirrhosis [Unknown]
  - Diabetic neuropathy [Unknown]

NARRATIVE: CASE EVENT DATE: 20100119
